FAERS Safety Report 7301922-4 (Version None)
Quarter: 2011Q1

REPORT INFORMATION
  Report Type: 
  Country: None (occurrence: None)
  Receive Date: 20110218
  Receipt Date: 20110214
  Transmission Date: 20110831
  Serious: Yes (Other)
  Sender: FDA-Public Use
  Company Number: AU-ROCHE-759660

PATIENT

DRUGS (3)
  1. AMPICILLIN [Suspect]
     Dosage: FREQUENCY: 1 TIME
     Route: 042
     Dates: start: 20101221
  2. GENTAMICIN SULFATE [Suspect]
     Dosage: FREQUENCY: 1 TIME
     Route: 042
     Dates: start: 20101221
  3. KETOROLAC TROMETHAMINE [Suspect]
     Dosage: FREQUENCY: 1 TIME
     Route: 030
     Dates: start: 20101221

REACTIONS (4)
  - DYSPNOEA [None]
  - VOMITING [None]
  - OXYGEN SATURATION DECREASED [None]
  - WHEEZING [None]
